FAERS Safety Report 13366212 (Version 3)
Quarter: 2017Q2

REPORT INFORMATION
  Report Type: Spontaneous
  Country: US (occurrence: US)
  Receive Date: 20170323
  Receipt Date: 20170601
  Transmission Date: 20170830
  Serious: No
  Sender: FDA-Public Use
  Company Number: US-TEVA-752799USA

PATIENT
  Sex: Female
  Weight: 45.85 kg

DRUGS (6)
  1. ALENDRONATE SODIUM. [Concomitant]
     Active Substance: ALENDRONATE SODIUM
  2. CARBIDOPA W/LEVODOPA [Concomitant]
     Active Substance: CARBIDOPA\LEVODOPA
     Indication: PARKINSON^S DISEASE
     Dosage: 25/100MG; 1.5 PER DAY
     Route: 065
  3. CALCIUM [Concomitant]
     Active Substance: CALCIUM
     Dosage: 1260 MILLIGRAM DAILY;
  4. RASAGILINE. [Suspect]
     Active Substance: RASAGILINE
     Dosage: 1 MILLIGRAM DAILY;
     Route: 065
     Dates: start: 20170216
  5. VITAMIN D [Concomitant]
     Active Substance: CHOLECALCIFEROL
     Dosage: 2500 IU (INTERNATIONAL UNIT) DAILY;
  6. AZILECT [Suspect]
     Active Substance: RASAGILINE MESYLATE
     Indication: PARKINSON^S DISEASE
     Dosage: 1 MILLIGRAM DAILY;
     Route: 065
     Dates: start: 2014, end: 201702

REACTIONS (2)
  - Intentional product misuse [Unknown]
  - Product substitution issue [Unknown]
